FAERS Safety Report 4387805-0 (Version None)
Quarter: 2004Q2

REPORT INFORMATION
  Report Type: 
  Country: None (occurrence: None)
  Receive Date: 20040630
  Receipt Date: 20040618
  Transmission Date: 20050107
  Serious: Yes (Death)
  Sender: FDA-Public Use
  Company Number: JP-GLAXOSMITHKLINE-B0336490A

PATIENT

DRUGS (1)
  1. ZEFIX [Suspect]
     Indication: HEPATIC CIRRHOSIS
     Route: 048

REACTIONS (1)
  - HEPATIC FUNCTION ABNORMAL [None]
